FAERS Safety Report 4861550-7 (Version None)
Quarter: 2005Q4

REPORT INFORMATION
  Report Type: 
  Country: None (occurrence: None)
  Receive Date: 20051129
  Receipt Date: 20041018
  Transmission Date: 20060501
  Serious: Yes (Disabling, Other)
  Sender: FDA-Public Use
  Company Number: WAES 0409USA02178

PATIENT
  Age: 50 Year
  Sex: Female

DRUGS (6)
  1. FOSAMAX [Suspect]
     Indication: OSTEOPENIA
     Dosage: 70 MG WKY PO
     Route: 048
     Dates: start: 20040519, end: 20040907
  2. ALLEGRA [Concomitant]
  3. KLONOPIN [Concomitant]
  4. PROZAC [Concomitant]
  5. VICODIN [Concomitant]
  6. ACETAMINOPHEN(+) CODEINE PHOSPH [Concomitant]

REACTIONS (1)
  - URTICARIA [None]
